FAERS Safety Report 13917851 (Version 6)
Quarter: 2018Q2

REPORT INFORMATION
  Report Type: Spontaneous
  Country: US (occurrence: US)
  Receive Date: 20170829
  Receipt Date: 20180611
  Transmission Date: 20180711
  Serious: Yes (Other)
  Sender: FDA-Public Use
  Company Number: US-PFIZER INC-2017366939

PATIENT
  Age: 62 Year
  Sex: Male
  Weight: 67.13 kg

DRUGS (10)
  1. METHOTREXATE SODIUM. [Suspect]
     Active Substance: METHOTREXATE SODIUM
     Indication: INFLAMMATION
  2. FOLIC ACID. [Concomitant]
     Active Substance: FOLIC ACID
     Indication: INFLAMMATION
     Dosage: 2 MG, DAILY
  3. METHOTREXATE. [Suspect]
     Active Substance: METHOTREXATE
     Indication: ARTHRITIS
     Dosage: 20 MG, WEEKLY
     Route: 048
     Dates: end: 201802
  4. ENBREL [Suspect]
     Active Substance: ETANERCEPT
     Indication: INFLAMMATION
  5. SULFASALAZINE. [Suspect]
     Active Substance: SULFASALAZINE
     Indication: ARTHRITIS
     Dosage: 2000 MG, 1X/DAY
  6. FOLIC ACID. [Concomitant]
     Active Substance: FOLIC ACID
     Indication: ARTHRITIS
  7. SULFASALAZINE. [Suspect]
     Active Substance: SULFASALAZINE
     Indication: INFLAMMATION
     Dosage: 2000 MG, DAILY (TWO 500MG TABLETS IN THE MORNING AND ANOTHER 2 ABOUT 12 HOURS LATER)
     Route: 048
  8. ENBREL [Suspect]
     Active Substance: ETANERCEPT
     Indication: ARTHRITIS
     Dosage: 50 ML PER WEEK BY INJECTION IN THE THIGH
     Dates: end: 201803
  9. METHOTREXATE SODIUM. [Suspect]
     Active Substance: METHOTREXATE SODIUM
     Indication: ARTHRITIS
     Dosage: 20 MG, WEEKLY
  10. METHOTREXATE. [Suspect]
     Active Substance: METHOTREXATE
     Indication: INFLAMMATION

REACTIONS (5)
  - Inflammation [Unknown]
  - Iritis [Unknown]
  - Vertigo [Unknown]
  - Drug ineffective [Unknown]
  - Product use in unapproved indication [Unknown]
